FAERS Safety Report 9964503 (Version 2)
Quarter: 2015Q3

REPORT INFORMATION
  Report Type: Spontaneous
  Country: US (occurrence: US)
  Receive Date: 20140305
  Receipt Date: 20150727
  Transmission Date: 20151125
  Serious: No
  Sender: FDA-Public Use
  Company Number: US-GILEAD-2012-0064941

PATIENT
  Age: 63 Year
  Sex: Male

DRUGS (3)
  1. EMTRIVA [Suspect]
     Active Substance: EMTRICITABINE
     Dosage: UNK
  2. EMTRIVA [Suspect]
     Active Substance: EMTRICITABINE
     Indication: HIV INFECTION
     Dosage: UNK, Q4HR
  3. EMTRIVA [Suspect]
     Active Substance: EMTRICITABINE
     Dosage: UNK UNK, Q4DAYS

REACTIONS (3)
  - Renal disorder [Unknown]
  - Accidental overdose [Unknown]
  - Medication error [Unknown]
